FAERS Safety Report 12211539 (Version 1)
Quarter: 2016Q1

REPORT INFORMATION
  Report Type: Spontaneous
  Country: US (occurrence: US)
  Receive Date: 20160325
  Receipt Date: 20160325
  Transmission Date: 20160526
  Serious: No
  Sender: FDA-Public Use
  Company Number: US-BAYER-2016-048111

PATIENT
  Sex: Female

DRUGS (1)
  1. CLARITIN [Suspect]
     Active Substance: LORATADINE
     Indication: PRURITUS
     Dosage: 1 HALF AND TWO PIECE
     Route: 048
     Dates: start: 20160309, end: 20160309

REACTIONS (7)
  - Product use issue [None]
  - Hypersensitivity [None]
  - Hypertension [None]
  - Headache [Not Recovered/Not Resolved]
  - Hypertension [None]
  - Product use issue [Not Recovered/Not Resolved]
  - Dizziness [None]

NARRATIVE: CASE EVENT DATE: 20160309
